FAERS Safety Report 10271354 (Version 1)
Quarter: 2014Q1

REPORT INFORMATION
  Report Type: Spontaneous
  Country: US (occurrence: None)
  Receive Date: 20140306
  Receipt Date: 20140306
  Transmission Date: 20141002
  Serious: Yes (Other)
  Sender: FDA-Public Use
  Company Number: 163-21880-13083755

PATIENT
  Age: 58 Year
  Sex: Female

DRUGS (9)
  1. REVLIMID [Suspect]
     Indication: PLASMA CELL MYELOMA
     Dosage: 25 MG, 21 IN 21 D
     Route: 048
     Dates: start: 20130809
  2. CALTRATE (CALCIUM CARBONATE) [Concomitant]
  3. CENTRUM SILVER (CENTRUM SILVER) [Concomitant]
  4. COREG (CARVEDILOL) [Concomitant]
  5. CYMBALTA [Concomitant]
  6. DEXAMETHASONE (DEXAMETHASONE) [Concomitant]
  7. HYDROCODONE/ACETAMINOPHEN (REMEDEINE) [Concomitant]
  8. MIRALAX (MACROGOL) [Concomitant]
  9. MORPHINE SULFATE (MORPHINE SULFATE) [Concomitant]

REACTIONS (2)
  - Stevens-Johnson syndrome [None]
  - Urticaria [None]
